APPROVED DRUG PRODUCT: CEFPROZIL
Active Ingredient: CEFPROZIL
Strength: 125MG/5ML
Dosage Form/Route: FOR SUSPENSION;ORAL
Application: A065261 | Product #001 | TE Code: AB
Applicant: LUPIN LTD
Approved: Dec 19, 2005 | RLD: No | RS: No | Type: RX